FAERS Safety Report 24747555 (Version 1)
Quarter: 2024Q4

REPORT INFORMATION
  Report Type: Spontaneous
  Country: US (occurrence: US)
  Receive Date: 20241218
  Receipt Date: 20241218
  Transmission Date: 20250115
  Serious: Yes (Hospitalization)
  Sender: RECORDATI
  Company Number: US-RECORDATI RARE DISEASES-2024009835

PATIENT

DRUGS (2)
  1. PANHEMATIN [Suspect]
     Active Substance: HEMIN
     Indication: Porphyria
     Dosage: 200 MG AS DIRECTED, 2 TIMES RECEIVED
     Route: 042
  2. PANHEMATIN [Suspect]
     Active Substance: HEMIN
     Dosage: 200 MG AS DIRECTED
     Route: 042
     Dates: start: 202411, end: 2024

REACTIONS (3)
  - Pain [Unknown]
  - Disease progression [Recovered/Resolved]
  - Disease progression [Recovered/Resolved]

NARRATIVE: CASE EVENT DATE: 20241101
